FAERS Safety Report 8385632-0 (Version None)
Quarter: 2012Q2

REPORT INFORMATION
  Report Type: 
  Country: None (occurrence: None)
  Receive Date: 20120525
  Receipt Date: 20120521
  Transmission Date: 20120825
  Serious: No
  Sender: FDA-Public Use
  Company Number: US-PFIZER INC-2012123245

PATIENT
  Sex: Female
  Weight: 72.109 kg

DRUGS (3)
  1. CELEBREX [Concomitant]
     Dosage: UNK
  2. ESTRING [Suspect]
     Indication: VULVOVAGINAL DRYNESS
     Dosage: 2 MG, UNK
     Route: 067
     Dates: start: 20120502
  3. ESTRING [Suspect]
     Dosage: UNK
     Route: 067

REACTIONS (1)
  - DRUG INEFFECTIVE [None]
